FAERS Safety Report 7031286-5 (Version None)
Quarter: 2010Q4

REPORT INFORMATION
  Report Type: 
  Country: None (occurrence: None)
  Receive Date: 20101006
  Receipt Date: 20100927
  Transmission Date: 20110411
  Serious: Yes (Hospitalization)
  Sender: FDA-Public Use
  Company Number: B0676294A

PATIENT
  Age: 68 Year
  Sex: Female
  Weight: 60 kg

DRUGS (12)
  1. AMPICILLIN SODIUM/SULBACTAM SODIUM [Suspect]
     Route: 048
     Dates: start: 20100907, end: 20100914
  2. LANSOPRAZOLE [Concomitant]
     Dosage: 30MG PER DAY
     Route: 048
  3. DICLOFENAC SODIUM [Concomitant]
     Dosage: 150MG PER DAY
     Route: 048
  4. DOCUSATE SODIUM [Concomitant]
     Dosage: 400MG PER DAY
     Route: 048
  5. ZOPICLONE [Concomitant]
     Dosage: 3.75MG PER DAY
     Route: 048
  6. DOMPERIDONE [Concomitant]
     Dosage: 30MG PER DAY
     Route: 048
  7. ACETAMINOPHEN AND CODEINE PHOSPHATE [Concomitant]
     Dosage: 8IUAX PER DAY
     Route: 048
  8. DEXAMETHASONE [Concomitant]
     Dosage: 2MG PER DAY
     Route: 048
  9. EXEMESTANE [Concomitant]
     Dosage: 25MG PER DAY
     Route: 048
  10. FRUSEMIDE [Concomitant]
     Dosage: 20MG PER DAY
     Route: 048
  11. CHEMOTHERAPY [Concomitant]
  12. RADIOTHERAPY [Concomitant]

REACTIONS (2)
  - CONDITION AGGRAVATED [None]
  - JAUNDICE [None]
